FAERS Safety Report 5179085-3 (Version None)
Quarter: 2006Q4

REPORT INFORMATION
  Report Type: 
  Country: None (occurrence: None)
  Receive Date: 20061219
  Receipt Date: 20061207
  Transmission Date: 20070319
  Serious: Yes (Other)
  Sender: FDA-Public Use
  Company Number: GBWYE771907DEC06

PATIENT
  Sex: Female
  Weight: 34.9 kg

DRUGS (4)
  1. ENBREL [Suspect]
     Indication: ARTHRITIS
     Route: 058
     Dates: start: 20040218, end: 20041201
  2. ENBREL [Suspect]
     Dosage: UNKNOWN
     Dates: start: 20050115
  3. METHOTREXATE [Concomitant]
     Dates: start: 20041101
  4. IBUPROFEN [Concomitant]
     Dates: start: 19960501

REACTIONS (2)
  - HERPES ZOSTER [None]
  - TINEA INFECTION [None]
